FAERS Safety Report 9478115 (Version 1)
Quarter: 2013Q3

REPORT INFORMATION
  Report Type: Report from Study
  Country: GB (occurrence: GB)
  Receive Date: 20130827
  Receipt Date: 20130827
  Transmission Date: 20140515
  Serious: Yes (Hospitalization)
  Sender: FDA-Public Use
  Company Number: GB-009507513-1308GBR009218

PATIENT
  Age: 76 Year
  Sex: Female
  Weight: 71.3 kg

DRUGS (14)
  1. DEXAMETHASONE [Suspect]
     Indication: PLASMA CELL MYELOMA
     Dosage: 28 MG, QD
     Route: 048
     Dates: start: 20120726, end: 20121118
  2. ELOTUZUMAB [Suspect]
     Indication: PLASMA CELL MYELOMA
     Dosage: 712.5 MG,QD
     Route: 041
     Dates: start: 20120726, end: 20121018
  3. REVLIMID [Suspect]
     Indication: PLASMA CELL MYELOMA
     Dosage: 25 MG, QD
     Route: 048
     Dates: start: 20120726, end: 20121107
  4. ASPIRINE [Concomitant]
  5. ATORVASTATIN [Concomitant]
  6. BISOPROLOL [Concomitant]
  7. DIGOXIN [Concomitant]
  8. FOLIC ACID [Concomitant]
  9. FERROUS FUMARATE [Concomitant]
  10. FUROSEMIDE [Concomitant]
     Dosage: UNK
     Dates: start: 20120829, end: 20120902
  11. VITAMINS (UNSPECIFIED) [Concomitant]
  12. OMEPRAZOLE [Concomitant]
  13. PENICILLIN (UNSPECIFIED) [Concomitant]
  14. CLODRONATE DISODIUM [Concomitant]

REACTIONS (2)
  - Confusional state [Recovered/Resolved]
  - Confusional state [Recovered/Resolved]
